FAERS Safety Report 10160669 (Version 1)
Quarter: 2014Q2

REPORT INFORMATION
  Report Type: Spontaneous
  Country: US (occurrence: None)
  Receive Date: 20140507
  Receipt Date: 20140507
  Transmission Date: 20141212
  Serious: Yes (Disabling)
  Sender: FDA-Public Use
  Company Number: None

PATIENT
  Age: 62 Year
  Sex: Female
  Weight: 64.86 kg

DRUGS (10)
  1. ATORVASTATIN [Suspect]
     Indication: BLOOD CHOLESTEROL INCREASED
     Route: 048
     Dates: start: 20131106, end: 20140313
  2. CLOPIDOGREL [Concomitant]
  3. ASPIRIN [Concomitant]
  4. NITROSTAT [Concomitant]
  5. ISOSORBIDE MONONITRATE [Concomitant]
  6. MULTI-VITAMIN [Concomitant]
  7. B-COMPLEX [Concomitant]
  8. VITAMIN C [Concomitant]
  9. CALCIUM [Concomitant]
  10. VITAMIN D [Concomitant]

REACTIONS (8)
  - Coronary arterial stent insertion [None]
  - Somnolence [None]
  - Amnesia [None]
  - Cognitive disorder [None]
  - Impaired work ability [None]
  - Movement disorder [None]
  - Thought blocking [None]
  - Eye movement disorder [None]
